FAERS Safety Report 10927931 (Version 1)
Quarter: 2015Q1

REPORT INFORMATION
  Report Type: Spontaneous
  Country: GB (occurrence: GB)
  Receive Date: 20150319
  Receipt Date: 20150319
  Transmission Date: 20150721
  Serious: Yes (Hospitalization, Other)
  Sender: FDA-Public Use
  Company Number: GB-ACCORD-029329

PATIENT
  Age: 78 Year
  Sex: Female
  Weight: 69.85 kg

DRUGS (13)
  1. FUROSEMIDE. [Concomitant]
     Active Substance: FUROSEMIDE
     Indication: DIURETIC THERAPY
     Dates: start: 2014
  2. LANSOPRAZOLE. [Concomitant]
     Active Substance: LANSOPRAZOLE
     Indication: GASTRIC ULCER
     Dates: start: 1995
  3. ENALAPRIL [Concomitant]
     Active Substance: ENALAPRIL
     Indication: HYPERTENSION
     Route: 048
     Dates: start: 1995
  4. BROMELAINS [Concomitant]
     Active Substance: BROMELAINS
     Dates: start: 1985
  5. DICYCLOVERINE [Concomitant]
     Indication: ENDOMETRIOSIS
     Route: 048
     Dates: start: 1980
  6. PARACETAMOL [Concomitant]
     Active Substance: ACETAMINOPHEN
     Indication: BACK PAIN
     Dosage: FOUR TIMES DAILY
     Dates: start: 1995
  7. TAMOXIFEN [Concomitant]
     Active Substance: TAMOXIFEN
     Indication: BREAST CANCER
     Route: 048
     Dates: start: 201212, end: 201502
  8. QUININE [Concomitant]
     Active Substance: QUININE
     Indication: MUSCLE SPASMS
     Dates: start: 1985
  9. ALLOPURINOL/ALLOPURINOL SODIUM [Suspect]
     Active Substance: ALLOPURINOL SODIUM
     Indication: GOUT
     Route: 048
     Dates: start: 201408, end: 201409
  10. GLUCOSAMINE [Concomitant]
     Active Substance: GLUCOSAMINE
     Dosage: STOPPED ON SEP-2014 AND RESTARTED ON FEB-2015
     Dates: start: 1985
  11. FERROPOLICHONDRUM [Concomitant]
     Dosage: STOPPED ON SEP-2014 AND RESTARTED ON FEB-2015
     Dates: start: 1985
  12. CARBIMAZOLE [Concomitant]
     Active Substance: CARBIMAZOLE
     Indication: THYROID DISORDER
     Route: 048
     Dates: start: 1980
  13. CALCIUM CARBONATE. [Concomitant]
     Active Substance: CALCIUM CARBONATE
     Indication: BONE DISORDER
     Route: 048
     Dates: start: 1990

REACTIONS (3)
  - Anxiety [Recovering/Resolving]
  - Cataract [Recovering/Resolving]
  - Depression [Recovering/Resolving]

NARRATIVE: CASE EVENT DATE: 201409
